FAERS Safety Report 6884910-1 (Version None)
Quarter: 2010Q3

REPORT INFORMATION
  Report Type: 
  Country: None (occurrence: None)
  Receive Date: 20100729
  Receipt Date: 20071009
  Transmission Date: 20110219
  Serious: Yes (Other)
  Sender: FDA-Public Use
  Company Number: US-PFIZER INC-2007083532

PATIENT
  Sex: Female
  Weight: 97.727 kg

DRUGS (3)
  1. ACCUPRIL [Suspect]
     Indication: HYPERTENSION
  2. LIPITOR [Concomitant]
  3. FOSAMAX [Concomitant]

REACTIONS (1)
  - HYPERTENSION [None]
